FAERS Safety Report 7977577-2 (Version None)
Quarter: 2011Q4

REPORT INFORMATION
  Report Type: 
  Country: None (occurrence: None)
  Receive Date: 20111214
  Receipt Date: 20111122
  Transmission Date: 20120403
  Serious: No
  Sender: FDA-Public Use
  Company Number: US-AMGEN-USASP2011061904

PATIENT

DRUGS (2)
  1. HUMIRA [Suspect]
  2. ENBREL [Suspect]

REACTIONS (1)
  - PSORIASIS [None]
